FAERS Safety Report 9470526 (Version 1)
Quarter: 2013Q3

REPORT INFORMATION
  Report Type: Spontaneous
  Country: GB (occurrence: None)
  Receive Date: 20130815
  Receipt Date: 20130815
  Transmission Date: 20140515
  Serious: Yes (Hospitalization)
  Sender: FDA-Public Use
  Company Number: NSR_01212_2013

PATIENT
  Age: 55 Year
  Sex: Female

DRUGS (2)
  1. VENLAFAXINE (VENLAFAXINE) [Suspect]
     Indication: FLUSHING
  2. TAMOXIFEN [Concomitant]

REACTIONS (9)
  - Cerebral vasoconstriction [None]
  - Anterograde amnesia [None]
  - Cerebral haemorrhage [None]
  - Somnolence [None]
  - Disorientation [None]
  - Aphasia [None]
  - Grand mal convulsion [None]
  - Hypoaesthesia [None]
  - Hemiparesis [None]
